FAERS Safety Report 5526531-9 (Version None)
Quarter: 2007Q4

REPORT INFORMATION
  Report Type: 
  Country: None (occurrence: None)
  Receive Date: 20071123
  Receipt Date: 20070515
  Transmission Date: 20080405
  Serious: Yes (Other)
  Sender: FDA-Public Use
  Company Number: US-JNJFOC-20070503994

PATIENT
  Age: 59 Year
  Sex: Female
  Weight: 108.8633 kg

DRUGS (5)
  1. LEVAQUIN [Suspect]
     Indication: DIVERTICULITIS
     Dosage: INTRAVENOUS
     Route: 042
     Dates: start: 20061221, end: 20061222
  2. LEVAQUIN [Suspect]
     Indication: DIVERTICULITIS
     Dosage: , 1 IN 1 DAY, ORAL
     Route: 048
     Dates: start: 20061222, end: 20061230
  3. DIAVAN (VALSARTAN) UNSPECIFIED [Concomitant]
  4. CARDIAZEM (DILTIAZEM HYDROCHLORIDE) UNSPECIFIED [Concomitant]
  5. ACIPHEX (RABEPRAZOLE SODIUM) UNSPECIFIED [Concomitant]

REACTIONS (1)
  - ROTATOR CUFF SYNDROME [None]
